FAERS Safety Report 18755823 (Version 1)
Quarter: 2021Q1

REPORT INFORMATION
  Report Type: Spontaneous
  Country: US (occurrence: US)
  Receive Date: 20210115
  Receipt Date: 20210115
  Transmission Date: 20210419
  Serious: No
  Sender: FDA-Public Use
  Company Number: None

PATIENT
  Sex: Female

DRUGS (2)
  1. MENOPUR [Suspect]
     Active Substance: FOLLITROPIN\LUTEINIZING HORMONE
     Indication: INFERTILITY FEMALE
     Route: 058
     Dates: start: 20210102
  2. GANIRELIX ; FOLLISTIM [Concomitant]

REACTIONS (4)
  - Nausea [None]
  - Abdominal distension [None]
  - Headache [None]
  - Product substitution issue [None]
